FAERS Safety Report 9495522 (Version 1)
Quarter: 2013Q3

REPORT INFORMATION
  Report Type: Spontaneous
  Country: US (occurrence: US)
  Receive Date: 20130903
  Receipt Date: 20130903
  Transmission Date: 20140515
  Serious: No
  Sender: FDA-Public Use
  Company Number: US-SANOFI-AVENTIS-2013SA050672

PATIENT
  Age: 10 Year
  Sex: Male
  Weight: 44 kg

DRUGS (1)
  1. ALLEGRA [Suspect]
     Indication: MULTIPLE ALLERGIES
     Route: 065
     Dates: start: 20130515

REACTIONS (2)
  - Abdominal discomfort [Not Recovered/Not Resolved]
  - Extra dose administered [Unknown]
